FAERS Safety Report 5600899-7 (Version None)
Quarter: 2008Q1

REPORT INFORMATION
  Report Type: 
  Country: None (occurrence: None)
  Receive Date: 20080124
  Receipt Date: 20080118
  Transmission Date: 20080703
  Serious: Yes (Other)
  Sender: FDA-Public Use
  Company Number: US-BAYER-200811580NA

PATIENT
  Sex: Female

DRUGS (4)
  1. MAGNEVIST [Suspect]
     Indication: NUCLEAR MAGNETIC RESONANCE IMAGING
     Dates: start: 20050601, end: 20050601
  2. OMNISCAN [Suspect]
     Dates: start: 20050601, end: 20050601
  3. MULTIHANCE [Suspect]
     Indication: NUCLEAR MAGNETIC RESONANCE IMAGING
     Dates: start: 20050601, end: 20050601
  4. OPTIMARK [Suspect]
     Indication: NUCLEAR MAGNETIC RESONANCE IMAGING
     Dates: start: 20050601, end: 20050601

REACTIONS (4)
  - FIBROSIS [None]
  - JOINT CONTRACTURE [None]
  - NEPHROGENIC SYSTEMIC FIBROSIS [None]
  - PAIN [None]
